FAERS Safety Report 17759535 (Version 1)
Quarter: 2020Q2

REPORT INFORMATION
  Report Type: Report from Study
  Country: CA (occurrence: CA)
  Receive Date: 20200508
  Receipt Date: 20200508
  Transmission Date: 20200714
  Serious: Yes (Other)
  Sender: FDA-Public Use
  Company Number: PHHY2019CA123757

PATIENT
  Age: 53 Year
  Sex: Female

DRUGS (5)
  1. COSENTYX [Suspect]
     Active Substance: SECUKINUMAB
     Dosage: 150 MG, QW (SENSOREADY PEN)
     Route: 058
     Dates: start: 20190522
  2. COSENTYX [Suspect]
     Active Substance: SECUKINUMAB
     Indication: ANKYLOSING SPONDYLITIS
     Dosage: 150 MG, QW (SENSOREADY PEN)
     Route: 058
     Dates: start: 20190501
  3. COSENTYX [Suspect]
     Active Substance: SECUKINUMAB
     Dosage: 150 MG, QMO
     Route: 058
     Dates: start: 2019
  4. COSENTYX [Suspect]
     Active Substance: SECUKINUMAB
     Dosage: 150 MG, QMO
     Route: 058
     Dates: start: 20190929
  5. BIAXIN [Suspect]
     Active Substance: CLARITHROMYCIN
     Indication: BRONCHITIS
     Dosage: 500 OT, BID
     Route: 065

REACTIONS (7)
  - Scleroderma [Unknown]
  - Decreased appetite [Unknown]
  - Injection site pain [Unknown]
  - Bronchitis [Recovering/Resolving]
  - Injection site haemorrhage [Unknown]
  - Back pain [Unknown]
  - Injection site oedema [Unknown]

NARRATIVE: CASE EVENT DATE: 2019
